FAERS Safety Report 4894812-8 (Version None)
Quarter: 2006Q1

REPORT INFORMATION
  Report Type: 
  Country: None (occurrence: None)
  Receive Date: 20060127
  Receipt Date: 20060127
  Transmission Date: 20060701
  Serious: Yes (Hospitalization)
  Sender: FDA-Public Use
  Company Number: None

PATIENT
  Age: 44 Year
  Sex: Male
  Weight: 70.3075 kg

DRUGS (4)
  1. ERBTIUX [Suspect]
     Indication: HYPOPHARYNGEAL CANCER
     Dosage: 250 MG ONCE /WEEK/IV DRIP
     Route: 041
     Dates: start: 20060104, end: 20060111
  2. TAXOL [Concomitant]
  3. CARBOPLATIN [Concomitant]
  4. RADIATION THERAPY [Concomitant]

REACTIONS (3)
  - CHILLS [None]
  - PYREXIA [None]
  - RASH [None]
